FAERS Safety Report 8552414-6 (Version None)
Quarter: 2012Q3

REPORT INFORMATION
  Report Type: 
  Country: None (occurrence: None)
  Receive Date: 20120724
  Receipt Date: 20120724
  Transmission Date: 20120928
  Serious: No
  Sender: FDA-Public Use
  Company Number: None

PATIENT
  Sex: Female

DRUGS (1)
  1. CALDOLOR [Suspect]
     Indication: PAIN
     Dosage: 800MG ONCE IV
     Route: 042

REACTIONS (1)
  - INJECTION SITE IRRITATION [None]
